FAERS Safety Report 8962168 (Version 1)
Quarter: 2012Q4

REPORT INFORMATION
  Report Type: 
  Country: US (occurrence: US)
  Receive Date: 20121212
  Receipt Date: 20121212
  Transmission Date: 20130627
  Serious: No
  Sender: FDA-Public Use
  Company Number: US-009507513-1212USA004018

PATIENT
  Sex: Male

DRUGS (1)
  1. NASONEX [Suspect]
     Dosage: 20 mcg/2 sprays in each nostril, qd
     Route: 055
     Dates: start: 20121203

REACTIONS (3)
  - Product quality control issue [Unknown]
  - No adverse event [Unknown]
  - Drug dose omission [Unknown]
